FAERS Safety Report 17510868 (Version 1)
Quarter: 2020Q1

REPORT INFORMATION
  Report Type: Spontaneous
  Country: US (occurrence: US)
  Receive Date: 20200306
  Receipt Date: 20200306
  Transmission Date: 20200409
  Serious: No
  Sender: FDA-Public Use
  Company Number: US-HARMONY BIOSCIENCES-2019HMY00083

PATIENT
  Age: 23 Year
  Sex: Female
  Weight: 81.63 kg

DRUGS (5)
  1. UNSPECIFIED BIRTH CONTROL [Suspect]
     Active Substance: UNSPECIFIED INGREDIENT
  2. XYREM [Concomitant]
     Active Substance: SODIUM OXYBATE
  3. EVEKEO [Concomitant]
     Active Substance: AMPHETAMINE SULFATE
  4. WAKIX [Suspect]
     Active Substance: PITOLISANT HYDROCHLORIDE
     Indication: NARCOLEPSY
     Dosage: 35.6 MG, 1X/DAY
     Route: 048
     Dates: start: 201905
  5. UNSPECIFIED VITAMINS [Concomitant]
     Active Substance: VITAMINS

REACTIONS (1)
  - Acne cystic [Not Recovered/Not Resolved]

NARRATIVE: CASE EVENT DATE: 201908
